FAERS Safety Report 17600140 (Version 1)
Quarter: 2020Q1

REPORT INFORMATION
  Report Type: Spontaneous
  Country: FR (occurrence: FR)
  Receive Date: 20200330
  Receipt Date: 20200330
  Transmission Date: 20200409
  Serious: Yes (Hospitalization, Other)
  Sender: FDA-Public Use
  Company Number: FR-SEATTLE GENETICS-2020SGN01632

PATIENT
  Age: 50 Year
  Sex: Female
  Weight: 100 kg

DRUGS (4)
  1. ADCETRIS [Suspect]
     Active Substance: BRENTUXIMAB VEDOTIN
     Indication: T-CELL LYMPHOMA STAGE IV
     Dosage: 1800 MILLIGRAM
     Route: 041
     Dates: start: 20191216, end: 20200113
  2. HOLOXAN [Suspect]
     Active Substance: IFOSFAMIDE
     Indication: T-CELL LYMPHOMA STAGE IV
     Dosage: 10000 MILLIGRAM
     Route: 041
     Dates: start: 20191216, end: 20200113
  3. CARBOPLATIN. [Suspect]
     Active Substance: CARBOPLATIN
     Indication: T-CELL LYMPHOMA STAGE IV
     Dosage: 420 MILLIGRAM
     Route: 041
     Dates: start: 20191216, end: 20200113
  4. ETOPOSIDE TEVA [Suspect]
     Active Substance: ETOPOSIDE
     Indication: T-CELL LYMPHOMA STAGE IV
     Dosage: 600 MILLIGRAM
     Route: 040
     Dates: start: 20191216, end: 20200113

REACTIONS (2)
  - Febrile bone marrow aplasia [Recovered/Resolved]
  - Septic shock [Recovered/Resolved]

NARRATIVE: CASE EVENT DATE: 20200121
